FAERS Safety Report 20332672 (Version 1)
Quarter: 2022Q1

REPORT INFORMATION
  Report Type: Spontaneous
  Country: US (occurrence: US)
  Receive Date: 20220113
  Receipt Date: 20220113
  Transmission Date: 20220423
  Serious: No
  Sender: FDA-Public Use
  Company Number: US-PFIZER INC-202200017409

PATIENT
  Age: 75 Year
  Sex: Female

DRUGS (4)
  1. DETROL [Suspect]
     Active Substance: TOLTERODINE TARTRATE
     Indication: Multiple sclerosis
     Dosage: UNK
  2. DETROL [Suspect]
     Active Substance: TOLTERODINE TARTRATE
     Indication: Urge incontinence
  3. DETROL [Suspect]
     Active Substance: TOLTERODINE TARTRATE
     Indication: Stress urinary incontinence
  4. DETROL [Suspect]
     Active Substance: TOLTERODINE TARTRATE
     Indication: Nocturia

REACTIONS (1)
  - Drug ineffective [Unknown]
